FAERS Safety Report 5460107-7 (Version None)
Quarter: 2007Q3

REPORT INFORMATION
  Report Type: 
  Country: None (occurrence: None)
  Receive Date: 20070919
  Receipt Date: 20070516
  Transmission Date: 20080115
  Serious: No
  Sender: FDA-Public Use
  Company Number: US-ASTRAZENECA-2007UW12217

PATIENT
  Age: 54 Year
  Sex: Female

DRUGS (4)
  1. SEROQUEL [Suspect]
     Indication: BIPOLAR I DISORDER
     Route: 048
     Dates: start: 20050101, end: 20070501
  2. BLOOD PRESSURE MEDICATION [Concomitant]
  3. WATER PILL [Concomitant]
  4. THYROID TAB [Concomitant]

REACTIONS (7)
  - ABDOMINAL PAIN UPPER [None]
  - COLITIS [None]
  - DIARRHOEA [None]
  - GASTROINTESTINAL DISORDER [None]
  - OESOPHAGEAL DISORDER [None]
  - VOMITING [None]
  - WEIGHT DECREASED [None]
